FAERS Safety Report 7887215-5 (Version None)
Quarter: 2011Q4

REPORT INFORMATION
  Report Type: 
  Country: None (occurrence: None)
  Receive Date: 20111102
  Receipt Date: 20110715
  Transmission Date: 20120403
  Serious: No
  Sender: FDA-Public Use
  Company Number: US-AMGEN-USASP2011036242

PATIENT
  Age: 70 Year
  Sex: Female

DRUGS (1)
  1. ENBREL [Suspect]
     Indication: RHEUMATOID ARTHRITIS
     Dosage: 50 MG, UNK
     Route: 058
     Dates: start: 20110708

REACTIONS (6)
  - ARTHRALGIA [None]
  - LOCAL SWELLING [None]
  - PAIN IN EXTREMITY [None]
  - BACK PAIN [None]
  - OEDEMA PERIPHERAL [None]
  - JOINT SWELLING [None]
